FAERS Safety Report 7680992-8 (Version None)
Quarter: 2011Q3

REPORT INFORMATION
  Report Type: 
  Country: None (occurrence: None)
  Receive Date: 20110812
  Receipt Date: 20110809
  Transmission Date: 20111222
  Serious: Yes (Life-Threatening, Hospitalization)
  Sender: FDA-Public Use
  Company Number: CN-JNJFOC-20110805076

PATIENT
  Age: 48 Year
  Sex: Female

DRUGS (2)
  1. NIZORAL [Suspect]
     Indication: ONYCHOMYCOSIS
     Dosage: APPROXIMATELY 10 DAYS
     Route: 048
     Dates: start: 20110601
  2. NIZORAL [Suspect]
     Dosage: POSSIBLY FOR 10 DAYS AND TAKEN ABOUT 10 TABLETS
     Route: 048
     Dates: start: 20110301

REACTIONS (3)
  - GASTRIC DISORDER [None]
  - OEDEMA PERIPHERAL [None]
  - HEPATIC FAILURE [None]
